FAERS Safety Report 5860308-X (Version None)
Quarter: 2008Q3

REPORT INFORMATION
  Report Type: 
  Country: None (occurrence: None)
  Receive Date: 20080827
  Receipt Date: 20070824
  Transmission Date: 20090109
  Serious: No
  Sender: FDA-Public Use
  Company Number: US-ABBOTT-07P-163-0414905-00

PATIENT
  Age: 59 Year
  Sex: Male

DRUGS (3)
  1. NIASPAN [Suspect]
     Indication: DRUG USE FOR UNKNOWN INDICATION
     Dosage: TWO TABLETS
     Route: 048
     Dates: start: 20070821, end: 20070822
  2. NIASPAN [Suspect]
     Route: 048
     Dates: start: 20070101, end: 20070820
  3. LISINOPRIL [Suspect]
     Indication: DRUG USE FOR UNKNOWN INDICATION
     Route: 048
     Dates: start: 20060901, end: 20070822

REACTIONS (1)
  - ANGIOEDEMA [None]
